FAERS Safety Report 17885179 (Version 3)
Quarter: 2021Q1

REPORT INFORMATION
  Report Type: Spontaneous
  Country: US (occurrence: US)
  Receive Date: 20200611
  Receipt Date: 20210304
  Transmission Date: 20210419
  Serious: Yes (Hospitalization, Other)
  Sender: FDA-Public Use
  Company Number: US-PFIZER INC-2020227456

PATIENT
  Age: 77 Year
  Sex: Female

DRUGS (1)
  1. XELJANZ [Suspect]
     Active Substance: TOFACITINIB CITRATE
     Dosage: 5 MG, UNK

REACTIONS (6)
  - Myositis [Unknown]
  - Skin ulcer [Unknown]
  - Bacteraemia [Unknown]
  - Rheumatoid arthritis [Unknown]
  - Muscle spasms [Unknown]
  - Sciatica [Unknown]
